FAERS Safety Report 16679595 (Version 2)
Quarter: 2020Q3

REPORT INFORMATION
  Report Type: Spontaneous
  Country: FR (occurrence: FR)
  Receive Date: 20190807
  Receipt Date: 20200917
  Transmission Date: 20201102
  Serious: Yes (Other)
  Sender: FDA-Public Use
  Company Number: FR-TEVA-2019-FR-1089192

PATIENT
  Age: 56 Year
  Sex: Female
  Weight: 48 kg

DRUGS (4)
  1. ANDROCUR 50 MG, COMPRIME [Suspect]
     Active Substance: CYPROTERONE ACETATE
     Indication: GENDER REASSIGNMENT THERAPY
     Dosage: 50MG
     Route: 048
     Dates: start: 1987, end: 2018
  2. OESTRODOSE [Concomitant]
     Active Substance: ESTRADIOL
     Indication: GENDER REASSIGNMENT THERAPY
     Route: 003
     Dates: start: 1987, end: 2018
  3. ESTRADIOL. [Concomitant]
     Active Substance: ESTRADIOL
     Indication: GENDER REASSIGNMENT THERAPY
     Dosage: 2MG
     Route: 048
     Dates: start: 1987, end: 20190312
  4. PROGESTERONE. [Suspect]
     Active Substance: PROGESTERONE
     Indication: GENDER REASSIGNMENT THERAPY
     Dosage: UNIT DOSE : 1000 MG PER MONTH
     Route: 048
     Dates: start: 1987, end: 20190312

REACTIONS (1)
  - Meningioma [Recovering/Resolving]

NARRATIVE: CASE EVENT DATE: 20190212
